FAERS Safety Report 12297513 (Version 1)
Quarter: 2016Q2

REPORT INFORMATION
  Report Type: Spontaneous
  Country: JP (occurrence: JP)
  Receive Date: 20160422
  Receipt Date: 20160422
  Transmission Date: 20160815
  Serious: Yes (Other)
  Sender: FDA-Public Use
  Company Number: JP-ASTRAZENECA-2016SE42816

PATIENT
  Age: 89 Year
  Sex: Female

DRUGS (1)
  1. MEROPEN [Suspect]
     Active Substance: MEROPENEM
     Route: 042

REACTIONS (3)
  - Rash [Unknown]
  - Acute generalised exanthematous pustulosis [Unknown]
  - Pyrexia [Unknown]
